FAERS Safety Report 9681814 (Version 1)
Quarter: 2013Q4

REPORT INFORMATION
  Report Type: Spontaneous
  Country: RU (occurrence: RU)
  Receive Date: 20131111
  Receipt Date: 20131111
  Transmission Date: 20140711
  Serious: Yes (Other)
  Sender: FDA-Public Use
  Company Number: PHHY2013RU127904

PATIENT
  Age: 34 Year
  Sex: Female

DRUGS (2)
  1. TACROLIMUS [Suspect]
     Route: 048
  2. PREDNISOLONE [Concomitant]

REACTIONS (4)
  - Attention deficit/hyperactivity disorder [Recovering/Resolving]
  - Proteinuria [Recovering/Resolving]
  - Anxiety [Recovering/Resolving]
  - Asthenia [Recovering/Resolving]
